FAERS Safety Report 9135528 (Version 1)
Quarter: 2013Q1

REPORT INFORMATION
  Report Type: Spontaneous
  Country: GB (occurrence: GB)
  Receive Date: 20130304
  Receipt Date: 20130304
  Transmission Date: 20140127
  Serious: Yes (Disabling)
  Sender: FDA-Public Use
  Company Number: PHHY2013GB019730

PATIENT
  Age: 83 Year
  Sex: Male
  Weight: 64 kg

DRUGS (8)
  1. DOXAZOSIN [Suspect]
     Dates: start: 20130212
  2. RAMIPRIL [Concomitant]
     Dates: start: 20121102, end: 20130205
  3. SIMVASTATIN [Concomitant]
     Dates: start: 20121102, end: 20130205
  4. LERCANIDIPINE HYDROCHLORIDE [Concomitant]
     Dates: start: 20121102, end: 20130205
  5. ASPIRIN [Concomitant]
     Dates: start: 20121102, end: 20130205
  6. LANSOPRAZOLE [Concomitant]
     Dates: start: 20121102, end: 20130205
  7. ATORVASTATIN [Concomitant]
     Dates: start: 20121211, end: 20130205
  8. VARDENAFIL [Concomitant]
     Dates: start: 20130212

REACTIONS (1)
  - Circulatory collapse [Recovering/Resolving]
